FAERS Safety Report 8076407-0 (Version None)
Quarter: 2012Q1

REPORT INFORMATION
  Report Type: 
  Country: None (occurrence: None)
  Receive Date: 20120127
  Receipt Date: 20120127
  Transmission Date: 20120608
  Serious: Yes (Death)
  Sender: FDA-Public Use
  Company Number: None

PATIENT
  Age: 52 Year
  Sex: Female
  Weight: 78.471 kg

DRUGS (16)
  1. OXYCODONE HCL [Concomitant]
  2. GABAPENTIN [Concomitant]
  3. MORPHINE [Concomitant]
  4. RIBAPAK -SEE MED LIST -SEC B-7- [Concomitant]
     Indication: HEPATITIS C
     Dosage: 600MG QAM AND 400MG QPM
     Route: 048
     Dates: start: 20111112, end: 20120101
  5. ASCORBIC ACID [Concomitant]
  6. LEVOTHYROXINE SODIUM [Concomitant]
  7. STEROID INJECTION [Concomitant]
  8. RIBAVIRIN [Interacting]
     Route: 048
  9. VITAMIN E [Concomitant]
  10. LORAZEPAM [Concomitant]
  11. PEGASYS [Suspect]
     Indication: HEPATITIS C
     Dosage: 180 MCG
     Route: 058
     Dates: start: 20111112, end: 20120101
  12. INCIVEK [Concomitant]
  13. SUPER VITAMIN B COMPLEX [Concomitant]
  14. FOLIC ACID [Concomitant]
  15. MILK THISTLE [Concomitant]
  16. RANITIDINE [Concomitant]

REACTIONS (2)
  - MYOCARDIAL INFARCTION [None]
  - THROMBOSIS [None]
